FAERS Safety Report 17000128 (Version 1)
Quarter: 2019Q4

REPORT INFORMATION
  Report Type: Report from Study
  Country: US (occurrence: US)
  Receive Date: 20191106
  Receipt Date: 20191106
  Transmission Date: 20200122
  Serious: Yes (Other)
  Sender: FDA-Public Use
  Company Number: US-TAIHO ONCOLOGY  INC-EU-2019-03607

PATIENT
  Age: 72 Year
  Sex: Male

DRUGS (7)
  1. DIPHENHYDRAMINE. [Concomitant]
     Active Substance: DIPHENHYDRAMINE
     Dosage: NI
  2. ATROPINE. [Concomitant]
     Active Substance: ATROPINE
     Dosage: NI
  3. LONSURF [Suspect]
     Active Substance: TIPIRACIL HYDROCHLORIDE\TRIFLURIDINE
     Indication: RECTAL CANCER
     Dosage: CURRENT CYCLE UNKNOWN
     Route: 048
     Dates: start: 20190827
  4. POTASSIUM [Concomitant]
     Active Substance: POTASSIUM
     Dosage: NI
  5. CALCIUM [Concomitant]
     Active Substance: CALCIUM
     Dosage: NI
  6. ONDANSETRON [Concomitant]
     Active Substance: ONDANSETRON
     Dosage: NI
  7. ATORVASTATIN [Concomitant]
     Active Substance: ATORVASTATIN
     Dosage: NI

REACTIONS (1)
  - Transfusion [Recovered/Resolved]

NARRATIVE: CASE EVENT DATE: 201910
